FAERS Safety Report 17355656 (Version 4)
Quarter: 2020Q3

REPORT INFORMATION
  Report Type: Spontaneous
  Country: FR (occurrence: FR)
  Receive Date: 20200131
  Receipt Date: 20200724
  Transmission Date: 20201102
  Serious: Yes (Life-Threatening, Hospitalization, Other)
  Sender: FDA-Public Use
  Company Number: FR-MYLANLABS-2020M1011219

PATIENT
  Age: 58 Year
  Sex: Female

DRUGS (8)
  1. NAPROXEN. [Suspect]
     Active Substance: NAPROXEN
     Dosage: 26 GRAM
     Route: 048
  2. NAPROXEN. [Suspect]
     Active Substance: NAPROXEN
     Dosage: 550 MILLIGRAM
  3. CITALOPRAM [Suspect]
     Active Substance: CITALOPRAM HYDROBROMIDE
     Indication: PRODUCT USED FOR UNKNOWN INDICATION
     Dosage: 10 MILLIGRAM (10 MG, UNK)
  4. ACEBUTOLOL [Suspect]
     Active Substance: ACEBUTOLOL
     Indication: PRODUCT USED FOR UNKNOWN INDICATION
     Dosage: 200 MILLIGRAM (200 MG, UNK)
  5. DIACETOLOL [Concomitant]
     Active Substance: DIACETOLOL
     Dosage: UNK
  6. ZOPICLONE [Suspect]
     Active Substance: ZOPICLONE
     Indication: PRODUCT USED FOR UNKNOWN INDICATION
     Dosage: 7.5 MILLIGRAM (7.5 MG, UNK)
  7. NAPROXEN. [Suspect]
     Active Substance: NAPROXEN
     Indication: PRODUCT USED FOR UNKNOWN INDICATION
     Dosage: 26 GRAM, TOTAL (26 G, ONCE)
  8. OXAZEPAM. [Suspect]
     Active Substance: OXAZEPAM
     Indication: PRODUCT USED FOR UNKNOWN INDICATION
     Dosage: 50 MILLIGRAM (50 MG, UNK)

REACTIONS (16)
  - Coagulopathy [Recovered/Resolved]
  - Cardiogenic shock [Recovering/Resolving]
  - Hypocoagulable state [Recovered/Resolved]
  - Bradycardia [Recovered/Resolved]
  - Haemodynamic instability [Recovered/Resolved]
  - Thrombocytopenia [Recovered/Resolved]
  - Toxicity to various agents [Recovered/Resolved]
  - Sinus rhythm [Recovered/Resolved]
  - Hypotension [Recovered/Resolved]
  - Electrocardiogram QT prolonged [Unknown]
  - Intentional overdose [Recovered/Resolved]
  - Coma [Recovered/Resolved]
  - Transaminases increased [Recovering/Resolving]
  - Lactic acidosis [Recovered/Resolved]
  - Suicide attempt [Unknown]
  - Pneumonia aspiration [Unknown]
